FAERS Safety Report 8465070-2 (Version None)
Quarter: 2012Q2

REPORT INFORMATION
  Report Type: 
  Country: None (occurrence: None)
  Receive Date: 20120626
  Receipt Date: 20120618
  Transmission Date: 20120825
  Serious: Yes (Hospitalization)
  Sender: FDA-Public Use
  Company Number: US-BAYER-2012-060869

PATIENT
  Age: 42 Year
  Sex: Female
  Weight: 68.027 kg

DRUGS (10)
  1. PATANOL [Concomitant]
     Dosage: 0.1 %, UNK
  2. VALACICLOVIR [Concomitant]
     Dosage: 500 MG, UNK
  3. ORPHENADRINE CITRATE [Concomitant]
     Dosage: 100 MG, UNK
  4. FLONASE [Concomitant]
     Dosage: 50 UNK, UNK
  5. AMOXICILLIN + CLAVULANATE POTASSIUM [Concomitant]
     Dosage: 875-125 MG, UNK
  6. TRAMADOL HCL [Concomitant]
     Dosage: 50 MG, UNK
  7. HYDROCODONE BITARTRATE + ACETAMINOPHEN [Concomitant]
     Dosage: 5 MG +#8211; 500 MG, UNK
  8. YAZ [Suspect]
     Dosage: UNK
     Dates: end: 20100401
  9. ALLEGRA [Concomitant]
     Dosage: 60 MG, UNK
  10. ACIPHEX [Concomitant]
     Dosage: 20 MG, UNK

REACTIONS (1)
  - DEEP VEIN THROMBOSIS [None]
